FAERS Safety Report 8458920-7 (Version None)
Quarter: 2012Q2

REPORT INFORMATION
  Report Type: 
  Country: None (occurrence: None)
  Receive Date: 20120622
  Receipt Date: 20120614
  Transmission Date: 20120825
  Serious: Yes (Other)
  Sender: FDA-Public Use
  Company Number: US-ROCHE-1034518

PATIENT
  Sex: Female

DRUGS (2)
  1. ACCUTANE [Suspect]
     Indication: ACNE
     Route: 065
  2. ACCUTANE [Suspect]
     Dates: start: 19940205, end: 19940804

REACTIONS (9)
  - COLITIS ULCERATIVE [None]
  - INFLAMMATORY BOWEL DISEASE [None]
  - ANXIETY [None]
  - SINUSITIS [None]
  - CYST [None]
  - DRY SKIN [None]
  - ABDOMINAL PAIN [None]
  - OTORRHOEA [None]
  - BACK PAIN [None]
